FAERS Safety Report 10285189 (Version 1)
Quarter: 2014Q3

REPORT INFORMATION
  Report Type: Spontaneous
  Country: US (occurrence: US)
  Receive Date: 20140708
  Receipt Date: 20140708
  Transmission Date: 20150326
  Serious: Yes (Other)
  Sender: FDA-Public Use
  Company Number: PHHY2014US080879

PATIENT

DRUGS (2)
  1. METHYLPREDNISOLONE [Suspect]
     Active Substance: METHYLPREDNISOLONE
     Dosage: (MATERNAL DOSE: 7.5 MG)
     Route: 064
  2. AZATHIOPRINE. [Suspect]
     Active Substance: AZATHIOPRINE
     Dosage: (MATERNAL DOSE: 100 MG)
     Route: 064

REACTIONS (14)
  - Ileal perforation [Unknown]
  - Enterococcal infection [Unknown]
  - Foetal exposure during pregnancy [Unknown]
  - Dyspnoea [Unknown]
  - Meconium cyst [Unknown]
  - Meconium abnormal [Unknown]
  - Ascites [Unknown]
  - Breech presentation [Unknown]
  - Hydrops foetalis [Unknown]
  - Use of accessory respiratory muscles [Unknown]
  - Meconium peritonitis [Unknown]
  - Gastrointestinal haemorrhage [Unknown]
  - Abdominal distension [Unknown]
  - Gastrointestinal sounds abnormal [Unknown]
